FAERS Safety Report 8902400 (Version 1)
Quarter: 2012Q4

REPORT INFORMATION
  Report Type: Report from Study
  Country: JP (occurrence: JP)
  Receive Date: 20121112
  Receipt Date: 20121112
  Transmission Date: 20130627
  Serious: Yes (Other)
  Sender: FDA-Public Use
  Company Number: JP-VERTEX PHARMACEUTICAL INC.-AE-2012-012035

PATIENT
  Age: 68 Year
  Sex: Female

DRUGS (26)
  1. VX-950 (TELAPREVIR) [Suspect]
     Indication: CHRONIC HEPATITIS C
     Dosage: 1500 mg, qd
     Route: 048
     Dates: start: 20120508, end: 20120521
  2. VX-950 (TELAPREVIR) [Suspect]
     Dosage: 750 mg, qd
     Dates: start: 20120522, end: 20120731
  3. RIBAVIRIN [Suspect]
     Indication: CHRONIC HEPATITIS C
     Dosage: 600 mg, qd
     Route: 048
     Dates: start: 20120508, end: 20120611
  4. RIBAVIRIN [Suspect]
     Dosage: 200 mg, qd
     Route: 048
     Dates: start: 20120612, end: 20120618
  5. RIBAVIRIN [Suspect]
     Dosage: 100 mg, qd
     Route: 048
     Dates: start: 20120619
  6. RIBAVIRIN [Suspect]
     Dosage: 300 mg, qd
     Route: 048
  7. PEGINTERFERON ALFA-2A [Suspect]
     Indication: CHRONIC HEPATITIS C
     Dosage: 1.5 ?g/kg, qw
     Route: 058
     Dates: start: 20120508, end: 20120515
  8. PEGINTERFERON ALFA-2A [Suspect]
     Dosage: 1.3 ?g/kg, qw
     Route: 058
     Dates: start: 20120522, end: 20120605
  9. PEGINTERFERON ALFA-2A [Suspect]
     Dosage: 0.8 ?g/kg, qw
     Dates: start: 20120612, end: 20120612
  10. PEGINTERFERON ALFA-2A [Suspect]
     Dosage: 1 ?g/kg, qw
     Route: 058
     Dates: start: 20120619, end: 20120703
  11. PEGINTERFERON ALFA-2A [Suspect]
     Dosage: 1.1 ?g/kg, qw
     Route: 058
     Dates: start: 20120710, end: 20120717
  12. PEGINTERFERON ALFA-2A [Suspect]
     Dosage: 0.95 ?g/kg, qw
     Route: 058
     Dates: start: 20120724, end: 20120814
  13. PEGINTERFERON ALFA-2A [Suspect]
     Dosage: 1 ?g/kg, qw
     Route: 058
     Dates: start: 20120821, end: 20120828
  14. PEGINTERFERON ALFA-2A [Suspect]
     Dosage: 1.1 ?g/kg, qw
     Route: 058
     Dates: start: 20120904, end: 20120911
  15. PEGINTERFERON ALFA-2A [Suspect]
     Dosage: 1.3 ?g/kg, qw
     Route: 058
     Dates: start: 20120918
  16. URSO                               /00465701/ [Concomitant]
     Dosage: 600 mg, qd
     Route: 048
     Dates: end: 20120523
  17. MYSER                              /01249201/ [Concomitant]
     Dosage: UNK, prn
     Route: 061
  18. ACTOS [Concomitant]
     Dosage: 15 mg, qd
     Route: 048
  19. GLIMEPIRIDE [Concomitant]
     Dosage: 2 mg, qd
     Route: 048
  20. JANUVIA [Concomitant]
     Dosage: 50 mg, qd
     Route: 048
  21. SEIBULE [Concomitant]
     Dosage: 150 mg, qd
     Route: 048
  22. CO-DIOVAN [Concomitant]
     Dosage: 1 DF, qd
     Route: 048
     Dates: end: 20120714
  23. ALOSITOL [Concomitant]
     Dosage: 100 mg, qd
     Route: 048
     Dates: start: 20120508
  24. RESTAMIN                           /00000401/ [Concomitant]
     Dosage: UNK UNK, prn
     Route: 061
     Dates: start: 20120511
  25. MIYA-BM [Concomitant]
     Dosage: 3 g, qd
     Route: 048
     Dates: start: 20120704
  26. LOXONIN [Concomitant]
     Dosage: UNK, prn
     Route: 061
     Dates: start: 20120918

REACTIONS (9)
  - Agranulocytosis [Unknown]
  - Neutropenia [Recovered/Resolved]
  - Platelet count decreased [None]
  - Abdominal discomfort [None]
  - Haemoglobin decreased [None]
  - Blood uric acid decreased [None]
  - Diarrhoea [None]
  - Cough [None]
  - Dizziness postural [None]
